FAERS Safety Report 6507580-0 (Version None)
Quarter: 2009Q4

REPORT INFORMATION
  Report Type: 
  Country: None (occurrence: None)
  Receive Date: 20091221
  Receipt Date: 20081126
  Transmission Date: 20100525
  Serious: No
  Sender: FDA-Public Use
  Company Number: US-BRISTOL-MYERS SQUIBB COMPANY-14449318

PATIENT
  Age: 64 Year
  Sex: Female
  Weight: 50 kg

DRUGS (10)
  1. LISINOPRIL [Suspect]
     Dosage: 1 DOSAGE FORM= 10(UNITS NOT SPEC)
  2. PRAVACHOL [Suspect]
     Dosage: 1 DOSAGE FORM= 20(UNITS NOT SPEC)
  3. ATENOLOL [Suspect]
     Dosage: 1 DOSAGE FORM= 50(UNITS NOT SPEC)
  4. CELEXA [Suspect]
     Dosage: 1 DOSAGE FORM= 40(UNITS NOT SPEC)
  5. PREVACID [Suspect]
     Dosage: 1 DOSAGE FORM= 30(UNITS NOT SPEC)
  6. ASPIRIN [Suspect]
     Dosage: 1 DOSAGE FORM= 81(UNITS NOT SPEC)
  7. COMBIVENT [Suspect]
     Route: 055
  8. FOLIC ACID [Suspect]
  9. ZETIA [Suspect]
     Dosage: 1 DOSAGE FORM= 10(UNITS NOT SPEC)
  10. LAMICTAL [Suspect]
     Dosage: 1 DOSAGE FORM= 150(UNITS NOT SPEC)

REACTIONS (2)
  - DIZZINESS [None]
  - DYSPNOEA [None]
